FAERS Safety Report 24459339 (Version 1)
Quarter: 2024Q4

REPORT INFORMATION
  Report Type: Report from Study
  Country: US (occurrence: US)
  Receive Date: 20241018
  Receipt Date: 20241018
  Transmission Date: 20250114
  Serious: No
  Sender: ROCHE
  Company Number: US-ROCHE-3534302

PATIENT
  Age: 61 Year
  Sex: Male
  Weight: 93.18 kg

DRUGS (1)
  1. RITUXAN [Suspect]
     Active Substance: RITUXIMAB
     Indication: Rheumatoid arthritis
     Dosage: 500MG/50 ML. ON 15/AUG/2023 HE RECEIVED LAST DOSE
     Route: 041

REACTIONS (1)
  - Rheumatoid arthritis [Unknown]
